FAERS Safety Report 15651812 (Version 1)
Quarter: 2018Q4

REPORT INFORMATION
  Report Type: Spontaneous
  Country: DE (occurrence: DE)
  Receive Date: 20181123
  Receipt Date: 20181123
  Transmission Date: 20190205
  Serious: Yes (Hospitalization)
  Sender: FDA-Public Use
  Company Number: PHHY2016DE101905

PATIENT
  Sex: Male

DRUGS (1)
  1. TASIGNA [Suspect]
     Active Substance: NILOTINIB
     Indication: CHRONIC MYELOID LEUKAEMIA
     Dosage: UNK
     Route: 065
     Dates: end: 201210

REACTIONS (6)
  - Hypersensitivity [Unknown]
  - Blood glucose abnormal [Unknown]
  - Headache [Unknown]
  - Blood count abnormal [Unknown]
  - Hypertensive crisis [Unknown]
  - Drug intolerance [Unknown]

NARRATIVE: CASE EVENT DATE: 201210
